FAERS Safety Report 6801303-3 (Version None)
Quarter: 2010Q2

REPORT INFORMATION
  Report Type: 
  Country: None (occurrence: None)
  Receive Date: 20100629
  Receipt Date: 20100617
  Transmission Date: 20101027
  Serious: Yes (Other)
  Sender: FDA-Public Use
  Company Number: FR-ROCHE-685120

PATIENT
  Sex: Female

DRUGS (10)
  1. TOCILIZUMAB [Suspect]
     Indication: RHEUMATOID ARTHRITIS
     Route: 065
     Dates: start: 20090728
  2. TOCILIZUMAB [Suspect]
     Route: 065
     Dates: start: 20090826
  3. TOCILIZUMAB [Suspect]
     Route: 065
     Dates: start: 20090922
  4. TOCILIZUMAB [Suspect]
     Route: 065
     Dates: start: 20091020
  5. TOCILIZUMAB [Suspect]
     Route: 065
     Dates: start: 20091118
  6. TOCILIZUMAB [Suspect]
     Route: 065
     Dates: start: 20091215
  7. TOCILIZUMAB [Suspect]
     Dosage: 1 HOUR INFUSION.
     Route: 065
  8. TOCILIZUMAB [Suspect]
     Dosage: FROM WEEK 4 TO WEEK 24, SHE RECEIVED 5 INFUSIONS.
     Route: 042
  9. SPECIAFOLDINE [Concomitant]
     Route: 048
     Dates: start: 20090709
  10. METHOTREXATE [Concomitant]
     Route: 048
     Dates: start: 20081201, end: 20090401

REACTIONS (1)
  - ABORTION SPONTANEOUS [None]
